FAERS Safety Report 17780574 (Version 2)
Quarter: 2020Q3

REPORT INFORMATION
  Report Type: Spontaneous
  Country: HU (occurrence: HU)
  Receive Date: 20200513
  Receipt Date: 20200709
  Transmission Date: 20201102
  Serious: Yes (Hospitalization)
  Sender: FDA-Public Use
  Company Number: HU-MYLANLABS-2020M1045912

PATIENT
  Age: 12 Year
  Sex: Male

DRUGS (2)
  1. AZITHROMYCIN ANHYDROUS. [Suspect]
     Active Substance: AZITHROMYCIN ANHYDROUS
     Indication: PNEUMONIA
     Dosage: UNK
  2. AMOXICILLIN SODIUM W/CLAVULANIC ACID [Suspect]
     Active Substance: AMOXICILLIN\CLAVULANATE POTASSIUM
     Indication: PNEUMONIA
     Dosage: UNK
     Route: 042

REACTIONS (7)
  - Skin lesion [Recovering/Resolving]
  - Stevens-Johnson syndrome [Recovered/Resolved]
  - Aphthous ulcer [Recovering/Resolving]
  - Thrombocytosis [Recovering/Resolving]
  - Conjunctivitis [Recovering/Resolving]
  - Swelling of eyelid [Recovered/Resolved]
  - Mouth swelling [Recovered/Resolved]
